FAERS Safety Report 6357440-3 (Version None)
Quarter: 2009Q3

REPORT INFORMATION
  Report Type: 
  Country: None (occurrence: None)
  Receive Date: 20090916
  Receipt Date: 20090909
  Transmission Date: 20100115
  Serious: Yes (Hospitalization)
  Sender: FDA-Public Use
  Company Number: US-JNJFOC-20090903623

PATIENT
  Sex: Male
  Weight: 73.48 kg

DRUGS (3)
  1. DURAGESIC-100 [Suspect]
     Indication: BACK PAIN
     Dosage: 2 PATCHES OF 50 UG/HR
     Route: 062
     Dates: start: 20050101, end: 20090907
  2. DURAGESIC-100 [Suspect]
     Dosage: 2 PATCHES OF 50 UG/HR
     Route: 062
  3. GABAPENTIN [Concomitant]
     Indication: PAIN
     Route: 048

REACTIONS (4)
  - BACK PAIN [None]
  - INAPPROPRIATE SCHEDULE OF DRUG ADMINISTRATION [None]
  - PRODUCT QUALITY ISSUE [None]
  - SOMNOLENCE [None]
